FAERS Safety Report 10934271 (Version 1)
Quarter: 2015Q1

REPORT INFORMATION
  Report Type: Spontaneous
  Country: US (occurrence: US)
  Receive Date: 20150320
  Receipt Date: 20150320
  Transmission Date: 20150721
  Serious: Yes (Hospitalization)
  Sender: FDA-Public Use
  Company Number: US-GILEAD-2015-0142617

PATIENT
  Age: 65 Year
  Sex: Male

DRUGS (1)
  1. SOVALDI [Suspect]
     Active Substance: SOFOSBUVIR
     Indication: HEPATITIS C
     Dosage: 400 MG, QD
     Route: 048
     Dates: start: 20150122

REACTIONS (2)
  - Cupulolithiasis [Unknown]
  - Vertigo [Recovering/Resolving]

NARRATIVE: CASE EVENT DATE: 201501
